FAERS Safety Report 6581560-1 (Version None)
Quarter: 2010Q1

REPORT INFORMATION
  Report Type: 
  Country: None (occurrence: None)
  Receive Date: 20100215
  Receipt Date: 20100204
  Transmission Date: 20100710
  Serious: Yes (Death)
  Sender: FDA-Public Use
  Company Number: JP-JNJFOC-20091207359

PATIENT
  Sex: Female
  Weight: 54 kg

DRUGS (9)
  1. DOXORUBICIN HCL [Suspect]
     Indication: OVARIAN CANCER RECURRENT
     Route: 042
  2. DOXORUBICIN HCL [Suspect]
     Route: 042
  3. PYRIDOXAL PHOSPHATE [Concomitant]
     Indication: PROPHYLAXIS
     Route: 048
  4. MAGNESIUM OXIDE [Concomitant]
     Indication: CONSTIPATION
     Route: 048
  5. LACTOMIN [Concomitant]
     Indication: RASH
     Route: 048
  6. BETAMETHASONE SODIUM PHOSPHATE [Concomitant]
     Indication: PROPHYLAXIS
     Route: 061
  7. BETAMETHASONE SODIUM PHOSPHATE [Concomitant]
     Route: 048
  8. LOXOPROFEN SODIUM [Concomitant]
     Route: 048
  9. WARFARIN POTASSIUM [Concomitant]
     Route: 048

REACTIONS (3)
  - OVARIAN CANCER [None]
  - PRURITUS [None]
  - RASH [None]
